FAERS Safety Report 12822300 (Version 1)
Quarter: 2016Q4

REPORT INFORMATION
  Report Type: Spontaneous
  Country: US (occurrence: US)
  Receive Date: 20161007
  Receipt Date: 20161007
  Transmission Date: 20170207
  Serious: No
  Sender: FDA-Public Use
  Company Number: US-AMGEN-USASP2016129451

PATIENT
  Age: 14 Year
  Sex: Female

DRUGS (3)
  1. CYMBALTA [Concomitant]
     Active Substance: DULOXETINE HYDROCHLORIDE
     Dosage: 60 MG, QD
  2. ENBREL [Suspect]
     Active Substance: ETANERCEPT
     Indication: JUVENILE IDIOPATHIC ARTHRITIS
     Dosage: 50 MG, QWK
     Route: 065
     Dates: start: 201606
  3. MTX [Concomitant]
     Active Substance: METHOTREXATE SODIUM
     Dosage: 8 YELLOW PILLS PER WEEK

REACTIONS (3)
  - Injection site pain [Unknown]
  - Drug dose omission [Unknown]
  - Anxiety [Unknown]

NARRATIVE: CASE EVENT DATE: 2016
